FAERS Safety Report 5923154-4 (Version None)
Quarter: 2008Q4

REPORT INFORMATION
  Report Type: 
  Country: None (occurrence: None)
  Receive Date: 20081020
  Receipt Date: 20081010
  Transmission Date: 20090506
  Serious: Yes (Other)
  Sender: FDA-Public Use
  Company Number: BR-JNJFOC-20081003447

PATIENT
  Sex: Male
  Weight: 19 kg

DRUGS (1)
  1. HALDOL [Suspect]
     Indication: DRUG USE FOR UNKNOWN INDICATION
     Dosage: TABLETS OF 5 MG
     Route: 048

REACTIONS (6)
  - ACCIDENTAL EXPOSURE [None]
  - DECREASED ACTIVITY [None]
  - HYPERTONIA [None]
  - MUSCLE SPASMS [None]
  - MUSCULAR WEAKNESS [None]
  - SOMNOLENCE [None]
